FAERS Safety Report 6680446-1 (Version None)
Quarter: 2010Q2

REPORT INFORMATION
  Report Type: 
  Country: None (occurrence: None)
  Receive Date: 20100414
  Receipt Date: 20100406
  Transmission Date: 20101027
  Serious: Yes (Hospitalization)
  Sender: FDA-Public Use
  Company Number: BR-BIOGENIDEC-2009BI036817

PATIENT
  Age: 38 Year
  Sex: Female

DRUGS (1)
  1. AVONEX [Suspect]
     Indication: MULTIPLE SCLEROSIS
     Route: 030
     Dates: start: 20090701, end: 20091101

REACTIONS (5)
  - ABASIA [None]
  - ANAEMIA [None]
  - LEUKAEMIA [None]
  - PAIN [None]
  - PYREXIA [None]
